FAERS Safety Report 19212915 (Version 1)
Quarter: 2021Q2

REPORT INFORMATION
  Report Type: Spontaneous
  Country: US (occurrence: US)
  Receive Date: 20210504
  Receipt Date: 20210504
  Transmission Date: 20210717
  Serious: No
  Sender: FDA-Public Use
  Company Number: US-PFIZER INC-2021467751

PATIENT
  Age: 39 Year

DRUGS (3)
  1. IBRANCE [Suspect]
     Active Substance: PALBOCICLIB
  2. LETROZOLE. [Suspect]
     Active Substance: LETROZOLE
  3. TAMOXIFEN [Suspect]
     Active Substance: TAMOXIFEN

REACTIONS (1)
  - Neoplasm progression [Unknown]
